FAERS Safety Report 19474343 (Version 1)
Quarter: 2021Q2

REPORT INFORMATION
  Report Type: Spontaneous
  Country: CN (occurrence: CN)
  Receive Date: 20210630
  Receipt Date: 20210630
  Transmission Date: 20210717
  Serious: Yes (Hospitalization, Other)
  Sender: FDA-Public Use
  Company Number: CN-009507513-2106CHN006168

PATIENT
  Age: 69 Year
  Sex: Male
  Weight: 50 kg

DRUGS (3)
  1. INVANZ [Suspect]
     Active Substance: ERTAPENEM SODIUM
     Indication: CHYLURIA
     Dosage: 1 G, ONE TIME PER DAY
     Route: 041
     Dates: start: 20210604, end: 20210614
  2. SODIUM CHLORIDE. [Concomitant]
     Active Substance: SODIUM CHLORIDE
     Indication: CHYLURIA
     Dosage: 100 ML (DOSE ALSO REPORTED AS 250 ML, CONFLICT INFORMATION), ONE TIME A DAY
     Route: 041
     Dates: start: 20210604, end: 20210614
  3. LEVOFLOXACIN. [Concomitant]
     Active Substance: LEVOFLOXACIN
     Indication: CHYLURIA
     Dosage: 0.5 G, ONE TIME A DAY
     Route: 048
     Dates: start: 20210606, end: 20210608

REACTIONS (4)
  - Toxic encephalopathy [Recovered/Resolved]
  - Mental disorder [Recovered/Resolved]
  - Somnolence [Recovered/Resolved]
  - Delirium [Recovered/Resolved]

NARRATIVE: CASE EVENT DATE: 20210609
